FAERS Safety Report 15579840 (Version 1)
Quarter: 2018Q4

REPORT INFORMATION
  Report Type: Spontaneous
  Country: US (occurrence: US)
  Receive Date: 20181102
  Receipt Date: 20181102
  Transmission Date: 20190205
  Serious: Yes (Hospitalization, Other)
  Sender: FDA-Public Use
  Company Number: US-DRREDDYS-USA/USA/18/0105020

PATIENT
  Age: 65 Year
  Sex: Female

DRUGS (4)
  1. TACROLIMUS. [Suspect]
     Active Substance: TACROLIMUS
     Indication: TRANSPLANT REJECTION
     Route: 065
  2. PREDNISONE. [Suspect]
     Active Substance: PREDNISONE
     Indication: TRANSPLANT REJECTION
     Route: 065
  3. PREDNISONE. [Suspect]
     Active Substance: PREDNISONE
  4. LEFLUNOMIDE. [Suspect]
     Active Substance: LEFLUNOMIDE
     Indication: TRANSPLANT REJECTION
     Route: 065

REACTIONS (8)
  - Pulmonary mass [Unknown]
  - Infectious pleural effusion [Unknown]
  - Fungal infection [Unknown]
  - Pleural effusion [Unknown]
  - Escherichia infection [Unknown]
  - Stenotrophomonas infection [Unknown]
  - Hypoxia [Unknown]
  - Endophthalmitis [Unknown]
